FAERS Safety Report 8445970-X (Version None)
Quarter: 2012Q2

REPORT INFORMATION
  Report Type: 
  Country: None (occurrence: None)
  Receive Date: 20120618
  Receipt Date: 20120613
  Transmission Date: 20120825
  Serious: No
  Sender: FDA-Public Use
  Company Number: US-PFIZER INC-2012082839

PATIENT
  Sex: Male

DRUGS (1)
  1. CHANTIX [Suspect]
     Dosage: UNK
     Dates: start: 20090128, end: 20090221

REACTIONS (4)
  - EMOTIONAL DISTRESS [None]
  - DEPRESSION [None]
  - ABNORMAL BEHAVIOUR [None]
  - MENTAL DISORDER [None]
